FAERS Safety Report 17189630 (Version 1)
Quarter: 2019Q4

REPORT INFORMATION
  Report Type: Spontaneous
  Country: US (occurrence: US)
  Receive Date: 20191223
  Receipt Date: 20191223
  Transmission Date: 20200122
  Serious: Yes (Other)
  Sender: FDA-Public Use
  Company Number: US-ABBVIE-19K-163-3200577-00

PATIENT
  Age: 81 Year
  Sex: Male

DRUGS (6)
  1. VENCLEXTA [Suspect]
     Active Substance: VENETOCLAX
     Indication: ACUTE MYELOID LEUKAEMIA
     Dosage: 100 MG DAY 1,
     Route: 048
     Dates: start: 20190422, end: 20190422
  2. VENCLEXTA [Suspect]
     Active Substance: VENETOCLAX
     Dosage: TWO 100MG TABLETS ON DAYS 1 TO 14
     Route: 048
     Dates: start: 20190927
  3. VENCLEXTA [Suspect]
     Active Substance: VENETOCLAX
     Dosage: TWO 100MG TABLETS DAILY
     Route: 048
     Dates: start: 20190423, end: 20190927
  4. VENCLEXTA [Suspect]
     Active Substance: VENETOCLAX
     Dosage: TWO 100MG TABLETS DAYS 1 TO 28
     Route: 048
     Dates: start: 2019
  5. FLUCONAZOLE. [Concomitant]
     Active Substance: FLUCONAZOLE
     Indication: PRODUCT USED FOR UNKNOWN INDICATION
  6. AZACITIDINE. [Concomitant]
     Active Substance: AZACITIDINE
     Indication: PRODUCT USED FOR UNKNOWN INDICATION

REACTIONS (4)
  - Cytopenia [Unknown]
  - Blast cells present [Not Recovered/Not Resolved]
  - Performance status decreased [Not Recovered/Not Resolved]
  - Product use complaint [Not Recovered/Not Resolved]

NARRATIVE: CASE EVENT DATE: 2019
